FAERS Safety Report 25568096 (Version 1)
Quarter: 2025Q3

REPORT INFORMATION
  Report Type: Spontaneous
  Country: US (occurrence: US)
  Receive Date: 20250716
  Receipt Date: 20250716
  Transmission Date: 20251021
  Serious: No
  Sender: NOVO NORDISK
  Company Number: US-NOVOPROD-1265424

PATIENT
  Age: 77 Year
  Sex: Male

DRUGS (1)
  1. OZEMPIC [Suspect]
     Active Substance: SEMAGLUTIDE
     Indication: Product used for unknown indication
     Route: 058

REACTIONS (17)
  - Neuropathy peripheral [Unknown]
  - COVID-19 [Unknown]
  - Ageusia [Unknown]
  - Electric shock sensation [Unknown]
  - Supraventricular tachycardia [Unknown]
  - Sleep apnoea syndrome [Unknown]
  - Back pain [Unknown]
  - Unevaluable event [Unknown]
  - Traumatic pain [Unknown]
  - Constipation [Unknown]
  - Blood glucose increased [Unknown]
  - Asthenia [Unknown]
  - Nausea [Unknown]
  - Dysgeusia [Unknown]
  - Diarrhoea [Unknown]
  - Abdominal distension [Unknown]
  - Vomiting [Unknown]
